FAERS Safety Report 10943986 (Version 2)
Quarter: 2015Q1

REPORT INFORMATION
  Report Type: Spontaneous
  Country: RO (occurrence: RO)
  Receive Date: 20150323
  Receipt Date: 20150331
  Transmission Date: 20150721
  Serious: Yes (Death)
  Sender: FDA-Public Use
  Company Number: RO-AMGEN-ROUSP2015026446

PATIENT
  Age: 43 Year
  Sex: Male
  Weight: 114 kg

DRUGS (1)
  1. ENBREL [Suspect]
     Active Substance: ETANERCEPT
     Indication: ANKYLOSING SPONDYLITIS
     Dosage: 50 MG, UNK
     Route: 058
     Dates: start: 20090415, end: 20150115

REACTIONS (9)
  - Bronchopneumonia [Fatal]
  - Cardiac arrest [Fatal]
  - Viral infection [Fatal]
  - Respiratory arrest [Fatal]
  - Cardiac failure [Fatal]
  - Asthma [Fatal]
  - Acute respiratory failure [Fatal]
  - Respiratory failure [Fatal]
  - Malaise [Unknown]

NARRATIVE: CASE EVENT DATE: 20150208
